FAERS Safety Report 5741191-X (Version None)
Quarter: 2008Q2

REPORT INFORMATION
  Report Type: 
  Country: None (occurrence: None)
  Receive Date: 20080514
  Receipt Date: 20080506
  Transmission Date: 20081010
  Serious: Yes (Other)
  Sender: FDA-Public Use
  Company Number: TPA2008A00653

PATIENT
  Age: 57 Year
  Sex: Female
  Weight: 96.1626 kg

DRUGS (3)
  1. ACTOPLUS MET (PIOGLITAZONE HYDRCOCHLORIDE, METFORMIN HYDROCHLORIDE) (T [Suspect]
     Indication: TYPE 2 DIABETES MELLITUS
     Dosage: 15 MG/850 MG, PER ORAL; 15 MG/850 MG, 1 IN 1 D, PER ORAL
     Route: 048
     Dates: start: 20070501, end: 20080301
  2. ACTOPLUS MET (PIOGLITAZONE HYDRCOCHLORIDE, METFORMIN HYDROCHLORIDE) (T [Suspect]
     Indication: TYPE 2 DIABETES MELLITUS
     Dosage: 15 MG/850 MG, PER ORAL; 15 MG/850 MG, 1 IN 1 D, PER ORAL
     Route: 048
     Dates: start: 20080301
  3. CRESTOR [Concomitant]

REACTIONS (3)
  - CONSTIPATION [None]
  - INAPPROPRIATE SCHEDULE OF DRUG ADMINISTRATION [None]
  - WEIGHT INCREASED [None]
